FAERS Safety Report 9837111 (Version 3)
Quarter: 2014Q2

REPORT INFORMATION
  Report Type: Spontaneous
  Country: US (occurrence: US)
  Receive Date: 20140123
  Receipt Date: 20140411
  Transmission Date: 20141212
  Serious: Yes (Death, Hospitalization)
  Sender: FDA-Public Use
  Company Number: US-JNJFOC-20140109068

PATIENT
  Age: 58 Year
  Sex: Female

DRUGS (13)
  1. DOXIL (DOXORUBICIN HYDROCHLORIDE) [Suspect]
     Indication: BREAST CANCER METASTATIC
     Route: 042
     Dates: start: 20130913, end: 20131011
  2. COREG [Concomitant]
     Dosage: 6.25 MG (1/2 TABLET PER DAY)
     Route: 065
  3. COZAAR [Concomitant]
     Indication: HYPERTENSION
     Route: 048
  4. EFFEXOR XR [Concomitant]
     Indication: HOT FLUSH
     Route: 048
  5. MILES [Concomitant]
     Indication: HOT FLUSH
     Dosage: 5 CC
     Route: 065
  6. MSIR [Concomitant]
     Indication: PAIN
     Dosage: EVERY 4 HRS AS NECESSARY
     Route: 048
  7. MS CONTIN [Concomitant]
     Indication: PAIN
     Route: 048
  8. OMEPRAZOLE [Concomitant]
     Indication: GASTROOESOPHAGEAL REFLUX DISEASE
     Route: 065
  9. PRO AIR [Concomitant]
     Indication: CHRONIC OBSTRUCTIVE PULMONARY DISEASE
     Dosage: 1-2 PUFFS, EVERY 4-6 HOURS
     Route: 055
  10. SIMVASTATIN [Concomitant]
     Route: 065
  11. SPIRIVA [Concomitant]
     Route: 065
  12. VALTREX [Concomitant]
     Route: 048
  13. ASA [Concomitant]
     Route: 048

REACTIONS (2)
  - Respiratory failure [Fatal]
  - Hypoxia [Unknown]
